FAERS Safety Report 9761425 (Version 3)
Quarter: 2014Q1

REPORT INFORMATION
  Report Type: Spontaneous
  Country: TR (occurrence: TR)
  Receive Date: 20131216
  Receipt Date: 20140303
  Transmission Date: 20141002
  Serious: Yes (Hospitalization)
  Sender: FDA-Public Use
  Company Number: TR-VERTEX PHARMACEUTICALS INC-2013-011799

PATIENT
  Age: 63 Year
  Sex: Female

DRUGS (14)
  1. INCIVO [Suspect]
     Indication: CHRONIC HEPATITIS C
     Dosage: 750 MG, UNK
     Route: 048
     Dates: start: 20130904
  2. PEGINTERFERON ALFA 2B [Suspect]
     Indication: CHRONIC HEPATITIS C
     Dosage: 180 ?G, QW
     Route: 065
  3. PEGINTERFERON ALFA 2B [Suspect]
     Dosage: DOSAGE FORM: UNSPECIFIED
     Route: 065
     Dates: start: 20130904
  4. RIBAVIRIN [Suspect]
     Indication: CHRONIC HEPATITIS C
     Dosage: DOSAGE FORM: UNSPECIFIED
     Route: 065
     Dates: start: 20130904
  5. RIBAVIRIN [Suspect]
     Dosage: 800 MG, QD
     Route: 065
  6. RIBAVIRIN [Suspect]
     Dosage: 600 MG, QD
     Route: 065
  7. RIBAVIRIN [Suspect]
     Dosage: DOSAGE FORM: UNSPECIFIED
     Route: 065
  8. RIBAVIRIN [Suspect]
     Dosage: 600 MG, QD
  9. AMARYL [Concomitant]
     Dosage: UNK
     Route: 065
  10. LEVOTIRON [Concomitant]
     Dosage: UNK
     Route: 065
  11. STARLIX [Concomitant]
     Indication: DIABETES MELLITUS
  12. GLIFOR [Concomitant]
     Indication: DIABETES MELLITUS
  13. EXFORGE [Concomitant]
     Indication: HYPERTENSION
  14. TEFOR [Concomitant]
     Indication: HYPOTHYROIDISM

REACTIONS (6)
  - Blood glucose increased [Unknown]
  - Chest pain [Unknown]
  - Blood thyroid stimulating hormone increased [Recovered/Resolved]
  - Rash [Recovered/Resolved]
  - Anaemia [Unknown]
  - Periorbital oedema [Unknown]
